FAERS Safety Report 12606883 (Version 2)
Quarter: 2016Q3

REPORT INFORMATION
  Report Type: Spontaneous
  Country: JP (occurrence: JP)
  Receive Date: 20160729
  Receipt Date: 20160830
  Transmission Date: 20161109
  Serious: Yes (Other)
  Sender: FDA-Public Use
  Company Number: JP-PFIZER INC-2016359360

PATIENT
  Age: 34 Year
  Sex: Male

DRUGS (8)
  1. METHOTREXATE. [Suspect]
     Active Substance: METHOTREXATE
     Indication: ACUTE LYMPHOCYTIC LEUKAEMIA
     Dosage: UNK
     Route: 037
     Dates: start: 201309, end: 201311
  2. VINCRISTINE SULFATE. [Suspect]
     Active Substance: VINCRISTINE SULFATE
     Dosage: UNK
     Route: 042
     Dates: start: 201311, end: 201311
  3. ADRIACIN [Suspect]
     Active Substance: DOXORUBICIN HYDROCHLORIDE
     Indication: ACUTE LYMPHOCYTIC LEUKAEMIA
     Dosage: 49 MG/A DAY, CYCLIC
     Route: 042
     Dates: start: 201312, end: 201312
  4. VINCRISTINE SULFATE. [Suspect]
     Active Substance: VINCRISTINE SULFATE
     Indication: ACUTE LYMPHOCYTIC LEUKAEMIA
     Dosage: UNK
     Route: 042
     Dates: start: 201309, end: 201309
  5. METHOTREXATE. [Suspect]
     Active Substance: METHOTREXATE
     Dosage: UNK
     Route: 042
     Dates: start: 201311, end: 201311
  6. METHOTREXATE. [Suspect]
     Active Substance: METHOTREXATE
     Dosage: 90 MG/A DAY, CYCLIC
     Route: 042
     Dates: start: 201312, end: 201312
  7. VINCRISTINE SULFATE. [Suspect]
     Active Substance: VINCRISTINE SULFATE
     Dosage: 2 MG/A DAY, CYCLIC
     Route: 042
     Dates: start: 201312, end: 201312
  8. METHOTREXATE. [Suspect]
     Active Substance: METHOTREXATE
     Dosage: 15 MG/A DAY, CYCLIC
     Route: 037
     Dates: start: 201312, end: 201312

REACTIONS (2)
  - Hypertension [Recovered/Resolved]
  - Posterior reversible encephalopathy syndrome [Recovered/Resolved]

NARRATIVE: CASE EVENT DATE: 20131225
